FAERS Safety Report 18272253 (Version 1)
Quarter: 2020Q3

REPORT INFORMATION
  Report Type: Spontaneous
  Country: NO (occurrence: NO)
  Receive Date: 20200916
  Receipt Date: 20200916
  Transmission Date: 20201103
  Serious: No
  Sender: FDA-Public Use
  Company Number: NO-LUPIN PHARMACEUTICALS INC.-2019-07895

PATIENT
  Age: 39 Year
  Sex: Female

DRUGS (1)
  1. MISOPROSTOL TABLET [Suspect]
     Active Substance: MISOPROSTOL
     Indication: POST COITAL CONTRACEPTION
     Dosage: UNK
     Route: 065

REACTIONS (2)
  - Off label use [Unknown]
  - No adverse event [Unknown]
